FAERS Safety Report 17670729 (Version 1)
Quarter: 2020Q2

REPORT INFORMATION
  Report Type: Spontaneous
  Country: US (occurrence: US)
  Receive Date: 20200415
  Receipt Date: 20200415
  Transmission Date: 20200713
  Serious: Yes (Hospitalization)
  Sender: FDA-Public Use
  Company Number: None

PATIENT
  Sex: Male
  Weight: 71 kg

DRUGS (5)
  1. TAXOL [Concomitant]
     Active Substance: PACLITAXEL
  2. CARBOPLATIN. [Suspect]
     Active Substance: CARBOPLATIN
     Dates: start: 20191211, end: 20200313
  3. G-CSF (FIGRASTIM, AMGEN) [Concomitant]
  4. ETOPOSIDE (VP-16) [Concomitant]
     Active Substance: ETOPOSIDE
  5. IFOSFAMIDE. [Concomitant]
     Active Substance: IFOSFAMIDE

REACTIONS (3)
  - Anal ulcer [None]
  - Anal abscess [None]
  - Haemorrhoids [None]

NARRATIVE: CASE EVENT DATE: 20200402
